FAERS Safety Report 4761538-0 (Version None)
Quarter: 2005Q3

REPORT INFORMATION
  Report Type: 
  Country: None (occurrence: None)
  Receive Date: 20050901
  Receipt Date: 20041112
  Transmission Date: 20060218
  Serious: Yes (Other)
  Sender: FDA-Public Use
  Company Number: 15241

PATIENT
  Age: 38 Year
  Sex: Female
  Weight: 73.0291 kg

DRUGS (6)
  1. PACLITAXEL [Suspect]
     Indication: BREAST CANCER
     Dosage: 316MG, IV EVERY 2 WEEKS
     Route: 042
     Dates: start: 20041012
  2. PACLITAXEL [Suspect]
     Indication: BREAST CANCER
     Dosage: 316MG, IV EVERY 2 WEEKS
     Route: 042
     Dates: start: 20041027
  3. PACLITAXEL [Suspect]
     Indication: BREAST CANCER
     Dosage: 316MG, IV EVERY 2 WEEKS
     Route: 042
     Dates: start: 20041109
  4. AMITRIPTYLINE HCL [Concomitant]
  5. LUVOX [Concomitant]
  6. BUSPAR [Concomitant]

REACTIONS (2)
  - JAUNDICE [None]
  - SKIN EXFOLIATION [None]
